FAERS Safety Report 10684845 (Version 1)
Quarter: 2014Q4

REPORT INFORMATION
  Report Type: Spontaneous
  Country: US (occurrence: None)
  Receive Date: 20141230
  Receipt Date: 20141230
  Transmission Date: 20150529
  Serious: Yes (Hospitalization)
  Sender: FDA-Public Use
  Company Number: None

PATIENT
  Age: 10 Year
  Sex: Female
  Weight: 26.31 kg

DRUGS (3)
  1. CETIRIZINE [Suspect]
     Active Substance: CETIRIZINE HYDROCHLORIDE
     Indication: URTICARIA
     Dosage: 10 MLS ONCE DAILY AT BEDTIME  ONCE DAILY TAKEN BY MOUTH
     Route: 048
     Dates: start: 20140502, end: 20140725
  2. CETIRIZINE [Suspect]
     Active Substance: CETIRIZINE HYDROCHLORIDE
     Indication: SWOLLEN TONGUE
     Dosage: 10 MLS ONCE DAILY AT BEDTIME  ONCE DAILY TAKEN BY MOUTH
     Route: 048
     Dates: start: 20140502, end: 20140725
  3. CETIRIZINE [Suspect]
     Active Substance: CETIRIZINE HYDROCHLORIDE
     Indication: HOUSE DUST ALLERGY
     Dosage: 10 MLS ONCE DAILY AT BEDTIME  ONCE DAILY TAKEN BY MOUTH
     Route: 048
     Dates: start: 20140502, end: 20140725

REACTIONS (9)
  - Abnormal behaviour [None]
  - Feeling abnormal [None]
  - Fear of death [None]
  - Dyspnoea [None]
  - Suicidal ideation [None]
  - Depression [None]
  - Fear of eating [None]
  - Panic attack [None]
  - Emotional disorder [None]

NARRATIVE: CASE EVENT DATE: 20140708
